FAERS Safety Report 13068673 (Version 1)
Quarter: 2016Q4

REPORT INFORMATION
  Report Type: Spontaneous
  Country: GB (occurrence: GB)
  Receive Date: 20161228
  Receipt Date: 20161228
  Transmission Date: 20170207
  Serious: Yes (Hospitalization, Other)
  Sender: FDA-Public Use
  Company Number: GB-PFIZER INC-2016600375

PATIENT
  Age: 15 Year
  Sex: Male

DRUGS (2)
  1. SEVOFLURANE. [Suspect]
     Active Substance: SEVOFLURANE
     Indication: ANAESTHESIA PROCEDURE
     Dosage: UNK
     Route: 055
     Dates: start: 20161006, end: 20161006
  2. PROPOFOL HOSPIRA [Suspect]
     Active Substance: PROPOFOL
     Indication: ANAESTHESIA PROCEDURE
     Dosage: 150 MG, UNK
     Route: 042
     Dates: start: 20161006, end: 20161006

REACTIONS (4)
  - Vomiting [Unknown]
  - Pyrexia [Unknown]
  - Chills [Unknown]
  - Feeling cold [Unknown]

NARRATIVE: CASE EVENT DATE: 20161006
